FAERS Safety Report 4327952-2 (Version None)
Quarter: 2004Q1

REPORT INFORMATION
  Report Type: 
  Country: None (occurrence: None)
  Receive Date: 20040325
  Receipt Date: 20040310
  Transmission Date: 20041129
  Serious: No
  Sender: FDA-Public Use
  Company Number: 2004UW05205

PATIENT
  Age: 78 Year
  Sex: Female
  Weight: 70.3075 kg

DRUGS (2)
  1. TAMOXIFEN CITRATE [Suspect]
     Indication: BREAST CANCER
     Dosage: 20 MG QD PO
     Route: 048
     Dates: start: 20000101
  2. LIPITOR [Concomitant]

REACTIONS (1)
  - MACULAR DEGENERATION [None]
